FAERS Safety Report 24053195 (Version 1)
Quarter: 2024Q3

REPORT INFORMATION
  Report Type: Spontaneous
  Country: US (occurrence: US)
  Receive Date: 20240705
  Receipt Date: 20240705
  Transmission Date: 20241016
  Serious: No
  Sender: BOEHRINGER INGELHEIM
  Company Number: US-BoehringerIngelheim-2024-BI-037834

PATIENT
  Sex: Female

DRUGS (3)
  1. CLONIDINE [Suspect]
     Active Substance: CLONIDINE
     Indication: Blood pressure measurement
     Dosage: AS NEEDED
  2. INLYTA [Concomitant]
     Active Substance: AXITINIB
     Indication: Product used for unknown indication
     Dates: start: 20240614
  3. LISINOPRIL [Concomitant]
     Active Substance: LISINOPRIL
     Indication: Blood pressure management
     Dosage: IN THE MORNING

REACTIONS (2)
  - Hypertension [Unknown]
  - Headache [Unknown]
